FAERS Safety Report 9097205 (Version 2)
Quarter: 2013Q1

REPORT INFORMATION
  Report Type: Spontaneous
  Country: LB (occurrence: LB)
  Receive Date: 20130212
  Receipt Date: 20130302
  Transmission Date: 20140127
  Serious: Yes (Other)
  Sender: FDA-Public Use
  Company Number: PHHY2013LB010187

PATIENT
  Age: 10 Year
  Sex: Male

DRUGS (9)
  1. CICLOSPORIN [Suspect]
     Indication: BONE MARROW TRANSPLANT
     Dosage: 120 MG, QD
     Route: 042
  2. CICLOSPORIN [Suspect]
     Indication: BONE MARROW TRANSPLANT
     Dosage: 75 MG, BID
     Route: 048
  3. METHOTREXATE [Concomitant]
     Dosage: 15 MG/M2, QD
     Route: 042
  4. METHOTREXATE [Concomitant]
     Dosage: 10 MG/M2, QD
     Route: 042
  5. PENICILLIN G [Concomitant]
     Route: 048
  6. FLUCONAZOLE [Concomitant]
     Dosage: 100 MG, QD
     Route: 048
  7. VALACICLOVIR [Concomitant]
     Dosage: 500 MG, BID
     Route: 048
  8. SULFAMETHOXAZOLE AND TRIMETHOPRIM [Concomitant]
     Dosage: 800 MG, QD
  9. PREDNISONE [Concomitant]
     Dosage: 2 MG/KG, QD

REACTIONS (16)
  - Febrile neutropenia [Unknown]
  - Pyrexia [Unknown]
  - Neutropenia [Unknown]
  - Posterior reversible encephalopathy syndrome [Recovered/Resolved]
  - Headache [Recovered/Resolved]
  - Blood pressure increased [Recovered/Resolved]
  - Lethargy [Recovered/Resolved]
  - Hypotonia [Recovered/Resolved]
  - Clonus [Recovered/Resolved]
  - Grand mal convulsion [Recovered/Resolved]
  - Graft versus host disease in skin [Unknown]
  - Toxic encephalopathy [Recovered/Resolved]
  - Toxicity to various agents [Unknown]
  - Immunosuppressant drug level increased [Unknown]
  - Diarrhoea [Unknown]
  - Tachycardia [Recovered/Resolved]
